FAERS Safety Report 18417651 (Version 1)
Quarter: 2020Q4

REPORT INFORMATION
  Report Type: Spontaneous
  Country: US (occurrence: US)
  Receive Date: 20201022
  Receipt Date: 20201022
  Transmission Date: 20210114
  Serious: No
  Sender: FDA-Public Use
  Company Number: US-SEATTLE GENETICS-2020SGN04179

PATIENT
  Age: 60 Year
  Sex: Female

DRUGS (2)
  1. HERCEPTIN [Concomitant]
     Active Substance: TRASTUZUMAB
  2. TUKYSA [Suspect]
     Active Substance: TUCATINIB
     Indication: BREAST CANCER FEMALE

REACTIONS (16)
  - Abdominal pain upper [Unknown]
  - Adverse reaction [Unknown]
  - Skin discolouration [Unknown]
  - Stress at work [Unknown]
  - Eructation [Unknown]
  - Salivary gland disorder [Unknown]
  - Pruritus [Unknown]
  - Product dose omission in error [Unknown]
  - Hypoaesthesia [Unknown]
  - Salivary gland enlargement [Unknown]
  - Flatulence [Unknown]
  - Palmar-plantar erythrodysaesthesia syndrome [Unknown]
  - Diarrhoea [Unknown]
  - Dry skin [Unknown]
  - Frustration tolerance decreased [Unknown]
  - Dehydration [Unknown]

NARRATIVE: CASE EVENT DATE: 20200916
